FAERS Safety Report 7870736-9 (Version None)
Quarter: 2011Q4

REPORT INFORMATION
  Report Type: 
  Country: None (occurrence: None)
  Receive Date: 20111029
  Receipt Date: 20110221
  Transmission Date: 20120403
  Serious: Yes (Other)
  Sender: FDA-Public Use
  Company Number: US-AMGEN-USASP2011010135

PATIENT
  Age: 5 Year
  Sex: Male

DRUGS (1)
  1. ENBREL [Suspect]
     Indication: JUVENILE ARTHRITIS
     Dates: start: 20101201, end: 20110211

REACTIONS (5)
  - EYE PAIN [None]
  - DIARRHOEA [None]
  - VOMITING [None]
  - PYREXIA [None]
  - CONVULSION [None]
